FAERS Safety Report 7477768-3 (Version None)
Quarter: 2011Q2

REPORT INFORMATION
  Report Type: 
  Country: None (occurrence: None)
  Receive Date: 20110513
  Receipt Date: 20110201
  Transmission Date: 20111010
  Serious: No
  Sender: FDA-Public Use
  Company Number: A0911170A

PATIENT
  Age: 35 Year
  Sex: Female

DRUGS (3)
  1. VAGIFEM [Concomitant]
  2. ESTRADIOL [Concomitant]
  3. TREXIMET [Suspect]
     Indication: MIGRAINE
     Dosage: 1TAB AS REQUIRED
     Route: 048
     Dates: start: 20060401

REACTIONS (10)
  - TEMPERATURE INTOLERANCE [None]
  - ABDOMINAL DISCOMFORT [None]
  - DYSPHAGIA [None]
  - VOMITING [None]
  - PAIN [None]
  - CHILLS [None]
  - PAIN OF SKIN [None]
  - PHARYNGEAL OEDEMA [None]
  - FATIGUE [None]
  - DIARRHOEA [None]
